FAERS Safety Report 6018925-2 (Version None)
Quarter: 2008Q4

REPORT INFORMATION
  Report Type: 
  Country: None (occurrence: None)
  Receive Date: 20081224
  Receipt Date: 20081215
  Transmission Date: 20090506
  Serious: Yes (Hospitalization)
  Sender: FDA-Public Use
  Company Number: JP-PFIZER INC-2008072336

PATIENT

DRUGS (26)
  1. FARMORUBICIN [Suspect]
     Indication: HEPATIC NEOPLASM MALIGNANT
     Dosage: 20 MG, PER PROCEDURE
     Route: 013
     Dates: start: 20080619, end: 20080619
  2. LIPIODOL ULTRA-FLUID [Suspect]
     Indication: HEPATIC NEOPLASM MALIGNANT
     Dosage: 9 ML, PER PROCEDURE
     Route: 013
     Dates: start: 20080619, end: 20080619
  3. BLINDED THERAPY [Suspect]
     Indication: HEPATIC NEOPLASM MALIGNANT
     Dosage: 20 MG
     Route: 048
     Dates: start: 20080702, end: 20080813
  4. URSODIOL [Concomitant]
     Indication: PROPHYLAXIS
  5. BEKANAMYCIN SULFATE [Concomitant]
     Indication: POST PROCEDURAL INFECTION
  6. LIVACT [Concomitant]
     Indication: MEDICAL DIET
  7. MOSAPRIDE CITRATE [Concomitant]
     Indication: GASTRITIS
  8. FEXOFENADINE HYDROCHLORIDE [Concomitant]
     Indication: PRURITUS
  9. FUROSEMIDE [Concomitant]
     Indication: HYPERTENSION
  10. SPIRONOLACTONE [Concomitant]
     Indication: HYPERTENSION
  11. RABEPRAZOLE SODIUM [Concomitant]
     Indication: GASTRITIS
  12. PAROXETINE HCL [Concomitant]
     Indication: DEPRESSION
  13. ETIZOLAM [Concomitant]
     Indication: DEPRESSION
  14. ZOLPIDEM TARTRATE [Concomitant]
     Indication: INSOMNIA
  15. TRIAMCINOLONE ACETONIDE [Concomitant]
     Indication: STOMATITIS
     Dosage: UNK
     Dates: start: 20080814, end: 20080818
  16. AMINOLEBAN EN [Concomitant]
     Indication: HEPATIC CIRRHOSIS
  17. AMINOLEBAN EN [Concomitant]
     Indication: PROPHYLAXIS
  18. LOXOPROFEN SODIUM [Concomitant]
     Indication: PYREXIA
     Dosage: AS NEEDED
     Dates: start: 20080620
  19. BROTIZOLAM [Concomitant]
     Indication: INSOMNIA
  20. FLUOROMETHOLONE [Concomitant]
     Indication: CATARACT
  21. PRANOPROFEN [Concomitant]
     Indication: CATARACT
  22. LACTULOSE [Concomitant]
     Indication: HEPATIC ENCEPHALOPATHY
     Dates: start: 20080621
  23. STRONG NEO-MINOPHAGEN C [Concomitant]
     Indication: PROPHYLAXIS
  24. KETOPROFEN [Concomitant]
     Indication: OSTEOPOROSIS
     Dosage: AS NEEDED
     Dates: start: 20080702
  25. PREDNISOLONE [Concomitant]
     Indication: STOMATITIS
     Dosage: AS NEEDED
     Dates: start: 20080814, end: 20080818
  26. SUPLATAST TOSILATE [Concomitant]
     Indication: PRURITUS
     Dosage: UNK
     Dates: start: 20080804

REACTIONS (2)
  - CONTRALATERAL BREAST CANCER [None]
  - PORTAL VEIN THROMBOSIS [None]
